FAERS Safety Report 9834236 (Version 1)
Quarter: 2014Q1

REPORT INFORMATION
  Report Type: Spontaneous
  Country: FR (occurrence: FR)
  Receive Date: 20140122
  Receipt Date: 20140122
  Transmission Date: 20141002
  Serious: Yes (Other)
  Sender: FDA-Public Use
  Company Number: FR-BRISTOL-MYERS SQUIBB COMPANY-20035127

PATIENT
  Age: 41 Year
  Sex: Male

DRUGS (3)
  1. BARACLUDE TABS [Suspect]
     Indication: CHRONIC HEPATITIS B
     Route: 048
     Dates: start: 201204
  2. METOJECT [Suspect]
     Dosage: 1DF=10MG/ML
     Route: 058
     Dates: start: 20130415
  3. TEGRETOL [Suspect]
     Indication: EPILEPSY
     Route: 048

REACTIONS (2)
  - Weight increased [Unknown]
  - Hypoalbuminaemia [Unknown]
